FAERS Safety Report 24607053 (Version 1)
Quarter: 2024Q4

REPORT INFORMATION
  Report Type: Spontaneous
  Country: US (occurrence: None)
  Receive Date: 20241108
  Receipt Date: 20241108
  Transmission Date: 20250115
  Serious: No
  Sender: Public
  Company Number: None

PATIENT
  Age: 63 Year
  Sex: Male
  Weight: 405 kg

DRUGS (1)
  1. TIRZEPATIDE [Suspect]
     Active Substance: TIRZEPATIDE
     Dosage: 2.50 MG QWEEK SUBCUTANEOUS?
     Route: 058
     Dates: start: 20240806, end: 20240904

REACTIONS (2)
  - Constipation [None]
  - Vomiting [None]

NARRATIVE: CASE EVENT DATE: 20240904
